FAERS Safety Report 7177095-8 (Version None)
Quarter: 2010Q4

REPORT INFORMATION
  Report Type: 
  Country: None (occurrence: None)
  Receive Date: 20101220
  Receipt Date: 20101206
  Transmission Date: 20110411
  Serious: Yes (Hospitalization)
  Sender: FDA-Public Use
  Company Number: PHHY2010FR83425

PATIENT
  Sex: Male

DRUGS (2)
  1. EXFORGE [Suspect]
     Indication: HYPERTENSION
     Dosage: 05 MG/80 MG , TABLET, DAILY
  2. LODOZ [Suspect]
     Indication: HYPERTENSION
     Dosage: 2.5 MG/6.25 MG, DAILY

REACTIONS (3)
  - BLOOD PRESSURE INCREASED [None]
  - PARAESTHESIA [None]
  - PARALYSIS [None]
